FAERS Safety Report 24392760 (Version 1)
Quarter: 2024Q4

REPORT INFORMATION
  Report Type: Spontaneous
  Country: US (occurrence: None)
  Receive Date: 20241003
  Receipt Date: 20241003
  Transmission Date: 20250115
  Serious: Yes (Hospitalization)
  Sender: Public
  Company Number: None

PATIENT
  Sex: Male
  Weight: 96.8 kg

DRUGS (4)
  1. FLUOROURACIL [Suspect]
     Active Substance: FLUOROURACIL
  2. CAMPTOSAR [Concomitant]
     Active Substance: IRINOTECAN HYDROCHLORIDE
  3. LEUCOVORIN CALCIUM [Concomitant]
  4. OXALIPLATIN (ELOXATIN) [Concomitant]

REACTIONS (9)
  - Cough [None]
  - Dyspnoea [None]
  - Abdominal discomfort [None]
  - Vomiting [None]
  - Diarrhoea [None]
  - Pyrexia [None]
  - White blood cell count decreased [None]
  - Anaemia [None]
  - Blood lactic acid increased [None]

NARRATIVE: CASE EVENT DATE: 20240913
